FAERS Safety Report 7775904-2 (Version None)
Quarter: 2011Q3

REPORT INFORMATION
  Report Type: 
  Country: None (occurrence: None)
  Receive Date: 20110923
  Receipt Date: 20110921
  Transmission Date: 20111222
  Serious: Yes (Life-Threatening, Hospitalization, Disabling, Other)
  Sender: FDA-Public Use
  Company Number: US-B.I. PHARMACEUTICALS,INC./RIDGEFIELD-2011-BP-18233BP

PATIENT
  Age: 80 Year
  Sex: Female
  Weight: 107.95 kg

DRUGS (7)
  1. FAMOTIDINE [Concomitant]
     Dosage: 20 MG
  2. ASPIRIN [Concomitant]
     Dosage: 81 MG
  3. PAROXETINE HYDROCHLORIDE [Concomitant]
     Dosage: 20 MG
  4. ATENOLOL [Concomitant]
     Dosage: 50 MG
  5. PRADAXA [Suspect]
     Indication: ATRIAL FIBRILLATION
     Dosage: 300 MG
     Route: 048
     Dates: start: 20110608
  6. SIMVASTATIN [Concomitant]
     Dosage: 20 MG
  7. SYNTHROID [Concomitant]
     Dosage: 0.1 MG

REACTIONS (1)
  - CEREBROVASCULAR ACCIDENT [None]
